FAERS Safety Report 8020900-3 (Version None)
Quarter: 2011Q4

REPORT INFORMATION
  Report Type: 
  Country: None (occurrence: None)
  Receive Date: 20111228
  Receipt Date: 20111220
  Transmission Date: 20120403
  Serious: Yes (Death)
  Sender: FDA-Public Use
  Company Number: AUR-APL-2011-05381

PATIENT
  Age: 19 Year
  Sex: Female
  Weight: 66 kg

DRUGS (11)
  1. DEXTROAMPETAMINE SULFATE TAB [Concomitant]
  2. CITALOPRAM HYDROBROMIDE [Concomitant]
  3. HYDROCODONE BITARTRATE [Concomitant]
  4. DIAZEPAM [Suspect]
     Indication: PRODUCT USED FOR UNKNOWN INDICATION
  5. CYCLOBENZOPINE (CYCLOBENZAPRINE) [Concomitant]
  6. VENLAFAXINE [Suspect]
     Indication: PRODUCT USED FOR UNKNOWN INDICATION
  7. TEMAZEPAM [Suspect]
     Indication: PRODUCT USED FOR UNKNOWN INDICATION
     Dosage: 30 MG (30 MG, 1 IN 1 D)
  8. OXYCODONE HCL [Suspect]
     Indication: PRODUCT USED FOR UNKNOWN INDICATION
  9. CLONAZEPAM [Concomitant]
  10. ZOLPIDEM [Concomitant]
  11. CONCERTA [Concomitant]

REACTIONS (2)
  - ACCIDENTAL DEATH [None]
  - MULTIPLE DRUG OVERDOSE [None]
